FAERS Safety Report 7907311-3 (Version None)
Quarter: 2011Q4

REPORT INFORMATION
  Report Type: 
  Country: None (occurrence: None)
  Receive Date: 20111110
  Receipt Date: 20111102
  Transmission Date: 20120403
  Serious: Yes (Hospitalization)
  Sender: FDA-Public Use
  Company Number: CA-GLAXOSMITHKLINE-A0951765A

PATIENT
  Sex: Female

DRUGS (5)
  1. VENTOLIN [Concomitant]
  2. CLONAZEPAM [Concomitant]
  3. APO-SALVENT [Concomitant]
  4. ADVAIR DISKUS 100/50 [Suspect]
     Indication: ASTHMA
     Dosage: 1PUFF TWICE PER DAY
     Route: 055
     Dates: start: 20070101
  5. ATROVENT [Concomitant]

REACTIONS (5)
  - ANXIETY [None]
  - PNEUMONIA [None]
  - DYSPNOEA [None]
  - ASTHMA [None]
  - VOMITING [None]
